FAERS Safety Report 21951119 (Version 1)
Quarter: 2023Q1

REPORT INFORMATION
  Report Type: Spontaneous
  Country: US (occurrence: None)
  Receive Date: 20230203
  Receipt Date: 20230203
  Transmission Date: 20230417
  Serious: Yes (Disabling)
  Sender: FDA-Public Use
  Company Number: 2023A023451

PATIENT
  Sex: Female

DRUGS (1)
  1. FASENRA [Suspect]
     Active Substance: BENRALIZUMAB
     Indication: Asthma
     Dosage: 30MG/ML EVERY EIGHT WEEKS
     Route: 058
     Dates: start: 202010

REACTIONS (8)
  - Insomnia [Unknown]
  - COVID-19 [Unknown]
  - Illness [Unknown]
  - Product dose omission issue [Unknown]
  - Drug dose omission by device [Unknown]
  - Inappropriate schedule of product administration [Unknown]
  - Product packaging quantity issue [Unknown]
  - Insurance issue [Unknown]
